FAERS Safety Report 25587966 (Version 3)
Quarter: 2025Q3

REPORT INFORMATION
  Report Type: Report from Study
  Country: AR (occurrence: AR)
  Receive Date: 20250721
  Receipt Date: 20250801
  Transmission Date: 20251021
  Serious: Yes (Other)
  Sender: ABBVIE
  Company Number: AR-ABBVIE-6025947

PATIENT
  Age: 63 Year
  Sex: Female

DRUGS (1)
  1. RINVOQ [Suspect]
     Active Substance: UPADACITINIB
     Indication: Ankylosing spondylitis
     Dosage: FORM STRENGTH ; 15 MILLIGRAM 15MG X 30 TABLETS ?COMPRESSED
     Route: 048
     Dates: start: 20221211

REACTIONS (5)
  - Visual impairment [Unknown]
  - Eye infection fungal [Unknown]
  - Ocular hyperaemia [Unknown]
  - Abdominal discomfort [Recovered/Resolved]
  - Cataract [Unknown]

NARRATIVE: CASE EVENT DATE: 20250101
